FAERS Safety Report 5844012-X (Version None)
Quarter: 2008Q3

REPORT INFORMATION
  Report Type: 
  Country: None (occurrence: None)
  Receive Date: 20080813
  Receipt Date: 20080806
  Transmission Date: 20090109
  Serious: Yes (Other)
  Sender: FDA-Public Use
  Company Number: GB-TEVA-175437ISR

PATIENT
  Age: 17 Year
  Sex: Female

DRUGS (2)
  1. LEVOTHYROXINE SODIUM [Suspect]
     Indication: GOITRE
  2. PARACETAMOL [Suspect]

REACTIONS (1)
  - LIVER INJURY [None]
